FAERS Safety Report 17110168 (Version 1)
Quarter: 2019Q4

REPORT INFORMATION
  Report Type: Spontaneous
  Country: FR (occurrence: FR)
  Receive Date: 20191204
  Receipt Date: 20191204
  Transmission Date: 20200122
  Serious: Yes (Hospitalization)
  Sender: FDA-Public Use
  Company Number: FR-MYLANLABS-2019M1117014

PATIENT
  Age: 40 Year
  Sex: Female
  Weight: 96 kg

DRUGS (4)
  1. SURGESTONE [Suspect]
     Active Substance: PROMEGESTONE
     Indication: ENDOMETRIOSIS
     Dosage: 1 CP 24J/28
     Route: 048
     Dates: start: 2019, end: 20190614
  2. ANDROCUR [Suspect]
     Active Substance: CYPROTERONE ACETATE
     Indication: ENDOMETRIOSIS
     Dosage: UNK
     Route: 048
     Dates: start: 1999, end: 2004
  3. OPTIMIZETTE [Suspect]
     Active Substance: DESOGESTREL
     Indication: HORMONAL CONTRACEPTION
     Dosage: 1 DOSAGE FORM, QD
     Route: 048
     Dates: start: 2019, end: 2019
  4. OROMONE 2 MG, COMPRIM? PELLICUL? [Suspect]
     Active Substance: ESTRADIOL
     Indication: ENDOMETRIOSIS
     Dosage: 1 CP 24J/28J
     Route: 048
     Dates: start: 2019, end: 20190614

REACTIONS (1)
  - Meningioma [Not Recovered/Not Resolved]

NARRATIVE: CASE EVENT DATE: 20190614
